FAERS Safety Report 20985045 (Version 1)
Quarter: 2022Q2

REPORT INFORMATION
  Report Type: Spontaneous
  Country: US (occurrence: None)
  Receive Date: 20220621
  Receipt Date: 20220621
  Transmission Date: 20220721
  Serious: No
  Sender: FDA-Public Use
  Company Number: US-ROCHE-2904917

PATIENT
  Age: 51 Year
  Sex: Female

DRUGS (2)
  1. XELODA [Suspect]
     Active Substance: CAPECITABINE
     Indication: Breast cancer female
     Route: 048
  2. TUKYSA [Suspect]
     Active Substance: TUCATINIB
     Indication: Breast cancer female
     Route: 065

REACTIONS (7)
  - Blood bilirubin increased [Unknown]
  - Aspartate aminotransferase increased [Unknown]
  - Blood creatinine increased [Unknown]
  - Palmar-plantar erythrodysaesthesia syndrome [Unknown]
  - Skin exfoliation [Unknown]
  - Unevaluable event [Unknown]
  - Diarrhoea [Unknown]
